FAERS Safety Report 20516953 (Version 1)
Quarter: 2022Q1

REPORT INFORMATION
  Report Type: Spontaneous
  Country: US (occurrence: US)
  Receive Date: 20220225
  Receipt Date: 20220225
  Transmission Date: 20220423
  Serious: Yes (Other)
  Sender: FDA-Public Use
  Company Number: US-NOVOPROD-894026

PATIENT
  Sex: Female

DRUGS (1)
  1. SAXENDA [Suspect]
     Active Substance: LIRAGLUTIDE
     Indication: Weight decreased
     Dosage: 1.6 MG, QD
     Route: 058
     Dates: start: 2021

REACTIONS (3)
  - Cholelithiasis obstructive [Recovered/Resolved]
  - Weight decreased [Unknown]
  - Product use issue [Not Recovered/Not Resolved]
